FAERS Safety Report 6764393-2 (Version None)
Quarter: 2010Q2

REPORT INFORMATION
  Report Type: 
  Country: None (occurrence: None)
  Receive Date: 20100610
  Receipt Date: 20100602
  Transmission Date: 20101027
  Serious: Yes (Other)
  Sender: FDA-Public Use
  Company Number: TW-PFIZER INC-2010068818

PATIENT
  Age: 57 Year
  Sex: Male

DRUGS (1)
  1. CADUET [Suspect]
     Dosage: 5 MG/10 MG, 1X/DAY
     Dates: start: 20100401, end: 20100501

REACTIONS (2)
  - GAIT DISTURBANCE [None]
  - MYALGIA [None]
